FAERS Safety Report 13836198 (Version 3)
Quarter: 2017Q3

REPORT INFORMATION
  Report Type: Report from Study
  Country: US (occurrence: US)
  Receive Date: 20170804
  Receipt Date: 20170901
  Transmission Date: 20171127
  Serious: Yes (Other)
  Sender: FDA-Public Use
  Company Number: US-SHIRE-US201717024

PATIENT
  Age: 17 Year
  Sex: Female
  Weight: 58.5 kg

DRUGS (4)
  1. ALLOPURINOL. [Concomitant]
     Active Substance: ALLOPURINOL
     Indication: COLITIS ULCERATIVE
     Dosage: 100 MG, 1X/DAY:QD
     Route: 048
     Dates: start: 2005, end: 201706
  2. LIALDA [Suspect]
     Active Substance: MESALAMINE
     Indication: COLITIS ULCERATIVE
     Dosage: 1.2 G, 2X/DAY:BID
     Route: 048
     Dates: start: 2005
  3. MERCAPTOPURINE. [Concomitant]
     Active Substance: MERCAPTOPURINE
     Indication: COLITIS ULCERATIVE
     Dosage: 50 MG,(1/2 TAB) 3X A WEEK
     Route: 048
     Dates: start: 2005
  4. LIALDA [Suspect]
     Active Substance: MESALAMINE
     Indication: OFF LABEL USE

REACTIONS (3)
  - Haematochezia [Unknown]
  - Inappropriate schedule of drug administration [Unknown]
  - Product use issue [Unknown]

NARRATIVE: CASE EVENT DATE: 2005
